FAERS Safety Report 10607386 (Version 1)
Quarter: 2014Q4

REPORT INFORMATION
  Report Type: Spontaneous
  Country: US (occurrence: None)
  Receive Date: 20141124
  Receipt Date: 20141124
  Transmission Date: 20150529
  Serious: Yes (Hospitalization)
  Sender: FDA-Public Use
  Company Number: None

PATIENT
  Age: 62 Year
  Sex: Male
  Weight: 90.9 kg

DRUGS (8)
  1. HCTZ [Concomitant]
     Active Substance: HYDROCHLOROTHIAZIDE
  2. TEGRETOL XR [Concomitant]
     Active Substance: CARBAMAZEPINE
  3. ASPIRIN. [Concomitant]
     Active Substance: ASPIRIN
  4. KEPPRA [Concomitant]
     Active Substance: LEVETIRACETAM
  5. NIACIN. [Concomitant]
     Active Substance: NIACIN
  6. METFORMIN [Concomitant]
     Active Substance: METFORMIN HYDROCHLORIDE
  7. DILANTIN [Suspect]
     Active Substance: PHENYTOIN
     Indication: SEIZURE
     Dosage: 200MG  BID  PO?CHRONIC WITH RECENT DOSE CHANGE
     Route: 048
  8. LOSARTAN [Concomitant]
     Active Substance: LOSARTAN

REACTIONS (6)
  - Dizziness [None]
  - Cerebrovascular accident [None]
  - Toxicity to various agents [None]
  - Nausea [None]
  - Cardioactive drug level increased [None]
  - Balance disorder [None]

NARRATIVE: CASE EVENT DATE: 20140525
